FAERS Safety Report 8831705 (Version 4)
Quarter: 2014Q1

REPORT INFORMATION
  Report Type: Spontaneous
  Country: US (occurrence: US)
  Receive Date: 20121009
  Receipt Date: 20140122
  Transmission Date: 20141002
  Serious: Yes (Hospitalization, Other)
  Sender: FDA-Public Use
  Company Number: US-009507513-1202USA02275

PATIENT
  Sex: Female

DRUGS (4)
  1. FOSAMAX [Suspect]
     Indication: OSTEOPOROSIS
     Dosage: 70 MG, UNK
     Route: 048
     Dates: start: 1995, end: 2009
  2. FOSAMAX [Suspect]
     Indication: OSTEOPENIA
  3. FOSAMAX PLUS D [Suspect]
     Indication: OSTEOPOROSIS
     Dosage: 70 MG, PLUSD2800
     Route: 048
  4. FOSAMAX PLUS D [Suspect]
     Indication: OSTEOPENIA

REACTIONS (22)
  - Femur fracture [Unknown]
  - Intramedullary rod insertion [Unknown]
  - Femur fracture [Unknown]
  - Bone graft [Unknown]
  - Open reduction of fracture [Unknown]
  - Periprosthetic fracture [Unknown]
  - Hip fracture [Unknown]
  - Open reduction of fracture [Unknown]
  - Intramedullary rod insertion [Unknown]
  - Renal tubular necrosis [Unknown]
  - Haemoglobin decreased [Unknown]
  - Device failure [Unknown]
  - Fracture nonunion [Unknown]
  - Open reduction of fracture [Unknown]
  - Hypertension [Unknown]
  - Wound drainage [Recovering/Resolving]
  - Anxiety [Not Recovered/Not Resolved]
  - Depression [Not Recovered/Not Resolved]
  - Hypercholesterolaemia [Unknown]
  - Breath sounds abnormal [Unknown]
  - Periodontal operation [Unknown]
  - Oral surgery [Unknown]
